FAERS Safety Report 7536203-7 (Version None)
Quarter: 2011Q2

REPORT INFORMATION
  Report Type: 
  Country: None (occurrence: None)
  Receive Date: 20110609
  Receipt Date: 20110526
  Transmission Date: 20111010
  Serious: Yes (Hospitalization)
  Sender: FDA-Public Use
  Company Number: US-JNJFOC-20101206431

PATIENT
  Sex: Male
  Weight: 89.81 kg

DRUGS (8)
  1. STEROIDS NOS [Concomitant]
     Dates: start: 20060524
  2. CORTICOSTEROIDS [Concomitant]
  3. INFLIXIMAB, RECOMBINANT [Suspect]
     Indication: CROHN'S DISEASE
     Route: 042
     Dates: start: 20101108
  4. ACETAMINOPHEN [Concomitant]
     Indication: PREMEDICATION
     Dates: start: 20020814, end: 20100504
  5. ANTIHISTAMINES [Concomitant]
     Indication: PREMEDICATION
     Dates: start: 20020814, end: 20100504
  6. STEROIDS NOS [Concomitant]
     Indication: PREMEDICATION
     Dates: start: 20060327
  7. INFLIXIMAB, RECOMBINANT [Suspect]
     Route: 042
     Dates: start: 20020814
  8. COUMADIN [Concomitant]
     Indication: DEEP VEIN THROMBOSIS

REACTIONS (2)
  - ILEAL ULCER [None]
  - LOWER GASTROINTESTINAL HAEMORRHAGE [None]
